FAERS Safety Report 4727444-2 (Version None)
Quarter: 2005Q3

REPORT INFORMATION
  Report Type: 
  Country: None (occurrence: None)
  Receive Date: 20050727
  Receipt Date: 20050727
  Transmission Date: 20060218
  Serious: Yes (Death, Life-Threatening, Hospitalization)
  Sender: FDA-Public Use
  Company Number: None

PATIENT
  Age: 86 Year
  Sex: Female
  Weight: 59 kg

DRUGS (9)
  1. WARFARIN [Suspect]
     Indication: ATRIAL FIBRILLATION
     Dosage: 5 MG DAILY 5/WEEK AND 2.5 MG DAILY 2/WEEK [CHRONIC]
  2. LEXAPRO [Concomitant]
  3. COZAAR [Concomitant]
  4. MECLIZINE [Concomitant]
  5. ZOCOR [Concomitant]
  6. REMINYL [Concomitant]
  7. NAMENDA [Concomitant]
  8. DIGOXIN [Concomitant]
  9. CLONAZEPAM [Concomitant]

REACTIONS (9)
  - BRAIN MASS [None]
  - CEREBRAL HAEMORRHAGE [None]
  - DEPRESSED LEVEL OF CONSCIOUSNESS [None]
  - FALL [None]
  - HEMIPARESIS [None]
  - HYPERVENTILATION [None]
  - INTERNATIONAL NORMALISED RATIO INCREASED [None]
  - LETHARGY [None]
  - LOSS OF CONSCIOUSNESS [None]
